FAERS Safety Report 9164855 (Version 1)
Quarter: 2013Q1

REPORT INFORMATION
  Report Type: Spontaneous
  Country: US (occurrence: None)
  Receive Date: 20130227
  Receipt Date: 20130227
  Transmission Date: 20140127
  Serious: Yes (Other)
  Sender: FDA-Public Use
  Company Number: TPA2012A01849

PATIENT
  Sex: Male

DRUGS (1)
  1. ACTOS (PIOGLITAZONE HYDROCHLORIDE) [Suspect]
     Dates: start: 20101115, end: 20120209

REACTIONS (7)
  - Hyperglycaemia [None]
  - Haematochezia [None]
  - Haematuria [None]
  - Hypotension [None]
  - Gastrointestinal haemorrhage [None]
  - Renal failure chronic [None]
  - Haematemesis [None]
